FAERS Safety Report 15897962 (Version 3)
Quarter: 2024Q1

REPORT INFORMATION
  Report Type: Report from Study
  Country: JP (occurrence: JP)
  Receive Date: 20190201
  Receipt Date: 20240212
  Transmission Date: 20240410
  Serious: Yes (Hospitalization)
  Sender: FDA-Public Use
  Company Number: JP-BIOGEN-2017BI00489842

PATIENT
  Age: 2 Year
  Sex: Female
  Weight: 6.21 kg

DRUGS (28)
  1. SPINRAZA [Suspect]
     Active Substance: NUSINERSEN
     Indication: Spinal muscular atrophy
     Route: 050
     Dates: start: 20171115, end: 20171115
  2. SPINRAZA [Suspect]
     Active Substance: NUSINERSEN
     Route: 050
     Dates: start: 20171130, end: 20171130
  3. SPINRAZA [Suspect]
     Active Substance: NUSINERSEN
     Route: 050
     Dates: start: 20171214, end: 20171214
  4. SPINRAZA [Suspect]
     Active Substance: NUSINERSEN
     Route: 050
     Dates: start: 20180117, end: 20180117
  5. SPINRAZA [Suspect]
     Active Substance: NUSINERSEN
     Route: 050
     Dates: start: 20180517, end: 20180517
  6. SPINRAZA [Suspect]
     Active Substance: NUSINERSEN
     Route: 050
     Dates: start: 20180920, end: 20180920
  7. SPINRAZA [Suspect]
     Active Substance: NUSINERSEN
     Route: 050
     Dates: start: 20190205, end: 20190205
  8. VALPROATE SODIUM [Concomitant]
     Active Substance: VALPROATE SODIUM
     Indication: Spinal muscular atrophy
     Route: 050
  9. FENTANYL [Concomitant]
     Active Substance: FENTANYL\FENTANYL CITRATE
     Indication: Anaesthesia procedure
     Route: 050
  10. FENTANYL [Concomitant]
     Active Substance: FENTANYL\FENTANYL CITRATE
     Route: 050
     Dates: start: 20180517, end: 20180517
  11. FENTANYL [Concomitant]
     Active Substance: FENTANYL\FENTANYL CITRATE
     Route: 050
     Dates: start: 20180920, end: 20180920
  12. FENTANYL [Concomitant]
     Active Substance: FENTANYL\FENTANYL CITRATE
     Route: 050
     Dates: start: 20190205, end: 20190205
  13. LIDOCAINE [Concomitant]
     Active Substance: LIDOCAINE
     Indication: Anaesthesia procedure
     Route: 050
  14. LIDOCAINE [Concomitant]
     Active Substance: LIDOCAINE
     Route: 050
     Dates: start: 20180517, end: 20180517
  15. LIDOCAINE [Concomitant]
     Active Substance: LIDOCAINE
     Route: 050
     Dates: start: 20180920, end: 20180920
  16. LIDOCAINE [Concomitant]
     Active Substance: LIDOCAINE
     Route: 050
     Dates: start: 20190205, end: 20190205
  17. XYLOCAINE [Concomitant]
     Active Substance: LIDOCAINE HYDROCHLORIDE
     Indication: Anaesthesia procedure
     Route: 050
  18. XYLOCAINE [Concomitant]
     Active Substance: LIDOCAINE HYDROCHLORIDE
     Route: 050
     Dates: start: 20180517, end: 20180517
  19. XYLOCAINE [Concomitant]
     Active Substance: LIDOCAINE HYDROCHLORIDE
     Route: 050
     Dates: start: 20180920, end: 20180920
  20. XYLOCAINE [Concomitant]
     Active Substance: LIDOCAINE HYDROCHLORIDE
     Route: 050
     Dates: start: 20190205, end: 20190205
  21. VALPROATE SODIUM [Concomitant]
     Active Substance: VALPROATE SODIUM
     Indication: Epilepsy
     Route: 050
  22. VALPROATE SODIUM [Concomitant]
     Active Substance: VALPROATE SODIUM
     Dosage: VIA A GASTRIC FISTULA
     Route: 050
  23. LACTULOSE [Concomitant]
     Active Substance: LACTULOSE
     Indication: Spinal muscular atrophy
     Route: 050
  24. LACTULOSE [Concomitant]
     Active Substance: LACTULOSE
     Dosage: VIA A GASTRIC FISTULA
     Route: 050
  25. BISACODYL [Concomitant]
     Active Substance: BISACODYL
     Indication: Spinal muscular atrophy
     Dosage: DAILY DOSE: AT CONSTIPATION 2MG
     Route: 050
  26. HYALURONATE SODIUM [Concomitant]
     Active Substance: HYALURONATE SODIUM
     Indication: Spinal muscular atrophy
     Dosage: INSTILLED INTO EYES 4-6 TIMES PER DAY
     Route: 050
  27. PETROLATUM [Concomitant]
     Active Substance: PETROLATUM
     Indication: Asteatosis
     Dosage: DRY PARTS
     Route: 050
  28. ENEVO [Concomitant]
     Indication: Spinal muscular atrophy
     Dosage: VIA A GASTRIC FISTULA
     Route: 050
     Dates: start: 20170116

REACTIONS (4)
  - Bronchitis [Recovered/Resolved]
  - Atelectasis [Recovered/Resolved]
  - Pyrexia [Recovered/Resolved]
  - Pneumonia [Recovered/Resolved]

NARRATIVE: CASE EVENT DATE: 20171115
